FAERS Safety Report 8299017-9 (Version None)
Quarter: 2012Q2

REPORT INFORMATION
  Report Type: 
  Country: None (occurrence: None)
  Receive Date: 20120419
  Receipt Date: 20120409
  Transmission Date: 20120825
  Serious: No
  Sender: FDA-Public Use
  Company Number: US-BAYER-2012-036087

PATIENT
  Age: 37 Year
  Sex: Female

DRUGS (6)
  1. HYDROCODONE [Concomitant]
  2. IBUPROFEN (ADVIL) [Concomitant]
  3. ALEVE (CAPLET) [Suspect]
     Indication: ARTHRALGIA
     Dosage: UNK UNK, PRN
     Route: 048
  4. IBUPROFEN [Concomitant]
  5. MUSCLE RELAXANTS [Concomitant]
  6. UNKNOWN [Concomitant]

REACTIONS (1)
  - NO ADVERSE EVENT [None]
